FAERS Safety Report 13666954 (Version 1)
Quarter: 2017Q2

REPORT INFORMATION
  Report Type: Spontaneous
  Country: US (occurrence: US)
  Receive Date: 20170619
  Receipt Date: 20170619
  Transmission Date: 20170830
  Serious: No
  Sender: FDA-Public Use
  Company Number: US-ROCHE-1260543

PATIENT
  Age: 42 Year
  Sex: Female

DRUGS (8)
  1. XELODA [Suspect]
     Active Substance: CAPECITABINE
     Indication: PSEUDOMYXOMA PERITONEI
     Route: 065
     Dates: start: 2009
  2. XELODA [Suspect]
     Active Substance: CAPECITABINE
     Indication: APPENDIX CANCER
  3. LEUCOVORIN. [Concomitant]
     Active Substance: LEUCOVORIN
     Indication: PSEUDOMYXOMA PERITONEI
  4. AVASTIN [Suspect]
     Active Substance: BEVACIZUMAB
     Indication: APPENDIX CANCER
  5. 5-FLUOROURACIL [Concomitant]
     Active Substance: FLUOROURACIL
     Indication: PSEUDOMYXOMA PERITONEI
     Route: 065
  6. 5-FLUOROURACIL [Concomitant]
     Active Substance: FLUOROURACIL
     Indication: APPENDIX CANCER
  7. AVASTIN [Suspect]
     Active Substance: BEVACIZUMAB
     Indication: PSEUDOMYXOMA PERITONEI
     Route: 065
  8. LEUCOVORIN. [Concomitant]
     Active Substance: LEUCOVORIN
     Indication: APPENDIX CANCER

REACTIONS (2)
  - Neoplasm [Not Recovered/Not Resolved]
  - Disease progression [Not Recovered/Not Resolved]
